FAERS Safety Report 6406123-X (Version None)
Quarter: 2009Q4

REPORT INFORMATION
  Report Type: 
  Country: None (occurrence: None)
  Receive Date: 20091019
  Receipt Date: 20091008
  Transmission Date: 20100525
  Serious: Yes (Other)
  Sender: FDA-Public Use
  Company Number: US-JNJFOC-20091004227

PATIENT
  Age: 85 Year
  Sex: Female
  Weight: 49.9 kg

DRUGS (9)
  1. SIMPLY SLEEP NIGHTTIME [Suspect]
     Indication: INSOMNIA
     Route: 048
  2. AMILORIDE HYDROCHLORIDE [Concomitant]
     Indication: DIURETIC THERAPY
  3. HYDRALAZINE [Concomitant]
     Indication: HYPERTENSION
  4. CLONIDINE [Concomitant]
     Indication: HYPERTENSION
  5. POTASSIUM CHLORIDE [Concomitant]
     Indication: MEDICAL DIET
  6. ATENOLOL [Concomitant]
     Indication: CARDIAC DISORDER
  7. LISINOPRIL [Concomitant]
     Indication: HYPERTENSION
  8. LEVOTHYROXINE SODIUM [Concomitant]
     Indication: THYROID DISORDER
     Dosage: 50 MCG/0.5-1 TABLET DAILY
  9. ASPIRIN [Concomitant]
     Indication: CARDIAC DISORDER

REACTIONS (2)
  - HALLUCINATION, TACTILE [None]
  - HALLUCINATION, VISUAL [None]
